FAERS Safety Report 8132046-4 (Version None)
Quarter: 2012Q1

REPORT INFORMATION
  Report Type: 
  Country: None (occurrence: None)
  Receive Date: 20120213
  Receipt Date: 20120203
  Transmission Date: 20120608
  Serious: Yes (Death)
  Sender: FDA-Public Use
  Company Number: US-MYLANLABS-2012S1002816

PATIENT
  Age: 22 Year
  Sex: Female
  Weight: 127.01 kg

DRUGS (4)
  1. FENTANYL-100 [Suspect]
     Indication: PAIN
     Route: 062
  2. DOXYLAMINE SUCCINATE [Suspect]
  3. DEXTROMETHORPHAN [Suspect]
  4. CITALOPRAM HYDROBROMIDE [Suspect]

REACTIONS (2)
  - TOXICITY TO VARIOUS AGENTS [None]
  - SEDATION [None]
